FAERS Safety Report 22151796 (Version 1)
Quarter: 2023Q1

REPORT INFORMATION
  Report Type: Spontaneous
  Country: GB (occurrence: GB)
  Receive Date: 20230329
  Receipt Date: 20230329
  Transmission Date: 20230418
  Serious: Yes (Other)
  Sender: FDA-Public Use
  Company Number: None

PATIENT
  Age: 66 Year
  Sex: Male
  Weight: 90 kg

DRUGS (24)
  1. RAMIPRIL [Suspect]
     Active Substance: RAMIPRIL
     Indication: Ill-defined disorder
     Dosage: UNK
     Route: 065
     Dates: start: 20230321
  2. CALCIUM CARBONATE\CHOLECALCIFEROL [Concomitant]
     Active Substance: CALCIUM CARBONATE\CHOLECALCIFEROL
     Indication: Ill-defined disorder
     Dosage: 1 DOSAGE FORM, QD, CHEW ONE TABLET ONCE A DAY
     Route: 048
     Dates: start: 20220210
  3. AMITRIPTYLINE HYDROCHLORIDE [Concomitant]
     Active Substance: AMITRIPTYLINE HYDROCHLORIDE
     Indication: Ill-defined disorder
     Dosage: 1 DOSAGE FORM, PM, TAKE ONE TABLET EACH NIGHT
     Route: 065
     Dates: start: 20220330
  4. AMLODIPINE [Concomitant]
     Active Substance: AMLODIPINE BESYLATE
     Indication: Ill-defined disorder
     Dosage: 1 DOSAGE FORM, TAKE ONE DAILY
     Route: 065
     Dates: start: 20220330
  5. ATORVASTATIN [Concomitant]
     Active Substance: ATORVASTATIN
     Indication: Ill-defined disorder
     Dosage: 1 DOSAGE FORM, QD
     Route: 065
     Dates: start: 20220330
  6. TIOTROPIUM BROMIDE [Concomitant]
     Active Substance: TIOTROPIUM BROMIDE
     Indication: Ill-defined disorder
     Dosage: 1 DOSAGE FORM, QD, INHALE 1 DOSE ONCE DAIL
     Route: 055
     Dates: start: 20220330
  7. BUPRENORPHINE [Concomitant]
     Active Substance: BUPRENORPHINE
     Indication: Ill-defined disorder
     Dosage: 1 DOSAGE FORM, QD, APPLY ONE AS DIRECTED
     Route: 065
     Dates: start: 20221020
  8. CANDESARTAN [Concomitant]
     Active Substance: CANDESARTAN
     Indication: Ill-defined disorder
     Dosage: 1 DOSAGE FORM, QD, TAKE ONE ONCE DAILY
     Route: 065
     Dates: start: 20230313, end: 20230320
  9. CODEINE PHOSPHATE [Concomitant]
     Active Substance: CODEINE PHOSPHATE
     Indication: Ill-defined disorder
     Dosage: UNK, TAKE ONE TO TWO TABLET WHEN NEEDED FOR PAIN EVE
     Route: 065
     Dates: start: 20220330
  10. DICLOFENAC DIETHYLAMINE [Concomitant]
     Active Substance: DICLOFENAC DIETHYLAMINE
     Indication: Ill-defined disorder
     Dosage: UNK, APPLY  QDS  TO  ANKLE  AND  FOOT
     Route: 065
     Dates: start: 20230313, end: 20230314
  11. DOXAZOSIN [Concomitant]
     Active Substance: DOXAZOSIN MESYLATE
     Indication: Ill-defined disorder
     Dosage: 4 DOSAGE FORM, QD, TAKE FOUR ONCE DAILY
     Route: 065
     Dates: start: 20220330
  12. FINASTERIDE [Concomitant]
     Active Substance: FINASTERIDE
     Indication: Ill-defined disorder
     Dosage: 1 DOSAGE FORM, QD
     Route: 065
     Dates: start: 20220922
  13. FLUCLOXACILLIN [Concomitant]
     Active Substance: FLUCLOXACILLIN
     Indication: Ill-defined disorder
     Dosage: 1 DOSAGE FORM, Q4D, TAKE ONE 4 TIMES/DAY
     Route: 065
     Dates: start: 20230308, end: 20230315
  14. GABAPENTIN [Concomitant]
     Active Substance: GABAPENTIN
     Indication: Ill-defined disorder
     Dosage: 1 DOSAGE FORM, Q3D, TAKE ONE 3 TIMES/DAY
     Route: 065
     Dates: start: 20220330
  15. POLYETHYLENE GLYCOL 3350\POTASSIUM CHLORIDE\SODIUM BICARBONATE\SODIUM [Concomitant]
     Active Substance: POLYETHYLENE GLYCOL 3350\POTASSIUM CHLORIDE\SODIUM BICARBONATE\SODIUM CHLORIDE
     Indication: Ill-defined disorder
     Dosage: UNK, 1BD
     Route: 065
     Dates: start: 20220330
  16. OMEPRAZOLE [Concomitant]
     Active Substance: OMEPRAZOLE
     Indication: Ill-defined disorder
     Dosage: 1 DOSAGE FORM, QD, TAKE ONE DAILY WHEN REQUIRED
     Route: 065
     Dates: start: 20220330
  17. ACETAMINOPHEN [Concomitant]
     Active Substance: ACETAMINOPHEN
     Indication: Ill-defined disorder
     Dosage: UNK, TAKE ONE OR TWO TABLETS UP TO FOUR TIMES A DAY
     Route: 065
     Dates: start: 20220330
  18. PREDNISOLONE [Concomitant]
     Active Substance: PREDNISOLONE
     Indication: Ill-defined disorder
     Dosage: 6 DOSAGE FORM, QD, TAKE SIX TABLETS (30MG) EVERY MORNING FOR 5 DAY
     Route: 065
     Dates: start: 20221222, end: 20221227
  19. PROCHLORPERAZINE [Concomitant]
     Active Substance: PROCHLORPERAZINE
     Indication: Ill-defined disorder
     Dosage: UNK, TAKE ONE OR TWO TABLETS TWO TO THREE TIMES A DAY
     Route: 065
     Dates: start: 20230313, end: 20230320
  20. RAMIPRIL [Concomitant]
     Active Substance: RAMIPRIL
     Indication: Ill-defined disorder
     Dosage: 1 DOSAGE FORM, QD, TAKE ONE DAILY
     Route: 065
     Dates: start: 20230308
  21. RIVAROXABAN [Concomitant]
     Active Substance: RIVAROXABAN
     Indication: Ill-defined disorder
     Dosage: UNK, TAKE ONE TWICE A DAY WITH FOOD FOR 21DAYS, THEN
     Route: 065
     Dates: start: 20230308
  22. SYMBICORT [Concomitant]
     Active Substance: BUDESONIDE\FORMOTEROL FUMARATE DIHYDRATE
     Indication: Ill-defined disorder
     Dosage: 1 DOSAGE FORM, BID, INHALE ONE PUFF TWICE DAILY
     Route: 065
     Dates: start: 20220330
  23. BECLOMETHASONE DIPROPIONATE\FORMOTEROL FUMARATE\GLYCOPYRROLATE [Concomitant]
     Active Substance: BECLOMETHASONE DIPROPIONATE\FORMOTEROL FUMARATE\GLYCOPYRROLATE
     Indication: Ill-defined disorder
     Dosage: 2 DOSAGE FORM, BID, INHALE TWO PUFFS TWICE DAILY (PLEASE RETURN YOU
     Route: 065
     Dates: start: 20230117
  24. VENTOLIN [Concomitant]
     Active Substance: ALBUTEROL SULFATE
     Indication: Ill-defined disorder
     Dosage: 2 DOSAGE FORM, INHALE 2 DOSES AS NEEDED
     Route: 055
     Dates: start: 20220330

REACTIONS (2)
  - Oedema [Recovering/Resolving]
  - Perineal swelling [Unknown]

NARRATIVE: CASE EVENT DATE: 20230321
